FAERS Safety Report 21382864 (Version 1)
Quarter: 2022Q3

REPORT INFORMATION
  Report Type: Report from Study
  Country: US (occurrence: US)
  Receive Date: 20220927
  Receipt Date: 20220927
  Transmission Date: 20221026
  Serious: Yes (Other)
  Sender: FDA-Public Use
  Company Number: US-ABBVIE-4129985

PATIENT
  Age: 53 Year
  Sex: Male

DRUGS (1)
  1. HUMIRA [Suspect]
     Active Substance: ADALIMUMAB
     Indication: Psoriasis
     Dosage: CITRATE FREE
     Route: 058

REACTIONS (5)
  - Malignant melanoma [Recovering/Resolving]
  - Skull fractured base [Recovered/Resolved]
  - Fall [Recovered/Resolved]
  - Thermal burn [Unknown]
  - Skin disorder [Unknown]

NARRATIVE: CASE EVENT DATE: 20220201
